FAERS Safety Report 9154834 (Version 1)
Quarter: 2013Q1

REPORT INFORMATION
  Report Type: Spontaneous
  Country: US (occurrence: US)
  Receive Date: 20130311
  Receipt Date: 20130311
  Transmission Date: 20140127
  Serious: No
  Sender: FDA-Public Use
  Company Number: US-ABBOTT-12P-163-0964591-00

PATIENT
  Age: 22 Year
  Sex: Female
  Weight: 56.75 kg

DRUGS (4)
  1. LUPRON DEPOT 11.25 MG [Suspect]
     Indication: ENDOMETRIOSIS
     Dates: start: 201207
  2. NORETHINDRONE [Concomitant]
     Indication: ADVERSE DRUG REACTION
     Dosage: STARTED ON HE SAME DAY AS LUPRON DEPOT
     Dates: start: 201207
  3. NORETHINDRONE [Concomitant]
     Indication: PROPHYLAXIS
  4. CALCIUM [Concomitant]
     Indication: MINERAL SUPPLEMENTATION

REACTIONS (6)
  - Vaginal haemorrhage [Not Recovered/Not Resolved]
  - Menorrhagia [Not Recovered/Not Resolved]
  - Vulvovaginal pain [Not Recovered/Not Resolved]
  - Pyrexia [Unknown]
  - Dizziness [Unknown]
  - Vision blurred [Unknown]
